APPROVED DRUG PRODUCT: CLOBETASOL PROPIONATE
Active Ingredient: CLOBETASOL PROPIONATE
Strength: 0.05%
Dosage Form/Route: CREAM;TOPICAL
Application: A212982 | Product #001 | TE Code: AB1
Applicant: ENCUBE ETHICALS PRIVATE LTD
Approved: Aug 28, 2020 | RLD: No | RS: Yes | Type: RX